FAERS Safety Report 6876791-7 (Version None)
Quarter: 2010Q3

REPORT INFORMATION
  Report Type: 
  Country: None (occurrence: None)
  Receive Date: 20100727
  Receipt Date: 20100714
  Transmission Date: 20110219
  Serious: Yes (Other)
  Sender: FDA-Public Use
  Company Number: PHEH2008US03156

PATIENT
  Sex: Male

DRUGS (13)
  1. ZOMETA [Suspect]
     Indication: BONE DENSITY DECREASED
     Dosage: 4 MG, QMO
     Dates: start: 20050708, end: 20060901
  2. CASODEX [Concomitant]
  3. LUPRON [Concomitant]
  4. SYNTHROID [Concomitant]
  5. FLAGYL [Concomitant]
  6. LORCET-HD [Concomitant]
  7. ACETAMINOPHEN [Concomitant]
     Dosage: UNK
  8. PEN-VEE K [Concomitant]
     Dosage: 500 MG / QID
  9. LAXATIVES [Concomitant]
     Indication: CONSTIPATION
     Dosage: UNK
  10. KETOCONOZOLE [Concomitant]
     Dosage: UNK
  11. LUNESTA [Concomitant]
     Dosage: UNK
  12. HYDROCORTISONE [Concomitant]
     Dosage: UNK
  13. ALEVE [Concomitant]
     Dosage: UNK

REACTIONS (39)
  - ANAEMIA [None]
  - ANXIETY [None]
  - BLOOD POTASSIUM INCREASED [None]
  - BONE EROSION [None]
  - CHEST DISCOMFORT [None]
  - CHEST PAIN [None]
  - CONSTIPATION [None]
  - DECREASED APPETITE [None]
  - DEPRESSION [None]
  - DIZZINESS [None]
  - HEMIPARESIS [None]
  - HOT FLUSH [None]
  - HYPERTENSION [None]
  - IMPAIRED HEALING [None]
  - INJURY [None]
  - JOINT SWELLING [None]
  - MALAISE [None]
  - METASTASES TO BONE [None]
  - MYALGIA [None]
  - OSTEITIS [None]
  - OSTEOMYELITIS [None]
  - OSTEONECROSIS OF JAW [None]
  - PAIN [None]
  - PAIN IN EXTREMITY [None]
  - PAIN IN JAW [None]
  - PELVIC PAIN [None]
  - PHYSICAL DISABILITY [None]
  - POOR DENTAL CONDITION [None]
  - PROSTATE CANCER [None]
  - PROSTATIC SPECIFIC ANTIGEN INCREASED [None]
  - PURULENT DISCHARGE [None]
  - RED BLOOD CELL COUNT DECREASED [None]
  - SPINAL OSTEOARTHRITIS [None]
  - SWELLING FACE [None]
  - SYNCOPE [None]
  - THROMBOCYTOPENIA [None]
  - TOOTH EXTRACTION [None]
  - TOOTH INFECTION [None]
  - WEIGHT DECREASED [None]
